FAERS Safety Report 9344680 (Version 1)
Quarter: 2013Q2

REPORT INFORMATION
  Report Type: Spontaneous
  Country: SE (occurrence: SE)
  Receive Date: 20130612
  Receipt Date: 20130612
  Transmission Date: 20140414
  Serious: Yes (Other)
  Sender: FDA-Public Use
  Company Number: SE-ABBOTT-13X-150-1102666-00

PATIENT
  Age: 42 Year
  Sex: Male

DRUGS (3)
  1. ERGENYL RETARD [Suspect]
     Indication: PRODUCT USED FOR UNKNOWN INDICATION
  2. CIPROFLOXACIN HYDROCHLORIDE [Concomitant]
     Indication: PRODUCT USED FOR UNKNOWN INDICATION
  3. CONCERTA [Concomitant]
     Indication: PRODUCT USED FOR UNKNOWN INDICATION

REACTIONS (1)
  - Hepatitis [Unknown]
